FAERS Safety Report 13926617 (Version 1)
Quarter: 2017Q3

REPORT INFORMATION
  Report Type: Spontaneous
  Country: US (occurrence: None)
  Receive Date: 20170831
  Receipt Date: 20170831
  Transmission Date: 20171127
  Serious: Yes (Hospitalization)
  Sender: FDA-Public Use
  Company Number: None

PATIENT
  Age: 57 Year
  Sex: Female

DRUGS (1)
  1. CLINDAMYCIN. [Suspect]
     Active Substance: CLINDAMYCIN
     Indication: GINGIVITIS
     Dates: start: 20170430, end: 20170514

REACTIONS (8)
  - Rhinorrhoea [None]
  - Diarrhoea [None]
  - Inappropriate schedule of drug administration [None]
  - Rash generalised [None]
  - Angioedema [None]
  - Rash pruritic [None]
  - Oropharyngeal pain [None]
  - Cough [None]

NARRATIVE: CASE EVENT DATE: 20170514
